FAERS Safety Report 20742224 (Version 3)
Quarter: 2022Q2

REPORT INFORMATION
  Report Type: Report from Study
  Country: DE (occurrence: DE)
  Receive Date: 20220423
  Receipt Date: 20220518
  Transmission Date: 20220721
  Serious: Yes (Hospitalization)
  Sender: FDA-Public Use
  Company Number: DE-JNJFOC-20220427892

PATIENT
  Age: 78 Year
  Sex: Male
  Weight: 120 kg

DRUGS (2)
  1. ABIRATERONE ACETATE [Suspect]
     Active Substance: ABIRATERONE ACETATE
     Indication: Prostate cancer metastatic
     Route: 048
     Dates: start: 20190329
  2. PREDNISOLONE [Suspect]
     Active Substance: PREDNISOLONE
     Indication: Prostate cancer metastatic
     Route: 048
     Dates: start: 20190329

REACTIONS (1)
  - Aortic aneurysm [Recovered/Resolved with Sequelae]

NARRATIVE: CASE EVENT DATE: 20220404
